FAERS Safety Report 7604180-6 (Version None)
Quarter: 2011Q3

REPORT INFORMATION
  Report Type: 
  Country: None (occurrence: None)
  Receive Date: 20110712
  Receipt Date: 20110707
  Transmission Date: 20111222
  Serious: Yes (Disabling)
  Sender: FDA-Public Use
  Company Number: US-MERCK-1106USA03397

PATIENT
  Age: 84 Year
  Sex: Female

DRUGS (2)
  1. ZOCOR [Suspect]
     Route: 048
  2. NIACIN [Concomitant]
     Route: 065
     Dates: end: 20110509

REACTIONS (4)
  - SPINAL COMPRESSION FRACTURE [None]
  - FALL [None]
  - DYSPHAGIA [None]
  - LUMBAR VERTEBRAL FRACTURE [None]
